FAERS Safety Report 6465884-4 (Version None)
Quarter: 2009Q4

REPORT INFORMATION
  Report Type: 
  Country: None (occurrence: None)
  Receive Date: 20091127
  Receipt Date: 20091116
  Transmission Date: 20100525
  Serious: Yes (Other)
  Sender: FDA-Public Use
  Company Number: 2009S1000095

PATIENT
  Age: 46 Year
  Sex: Female

DRUGS (2)
  1. INOVENT (DELIVERY SYSTEM) [Suspect]
     Indication: OXYGEN SUPPLEMENTATION
     Dosage: 5 PPM; CONT; INH
     Route: 055
     Dates: start: 20091001, end: 20091015
  2. INOMAX [Suspect]
     Indication: OXYGEN SUPPLEMENTATION
     Dosage: 5 PPM; CONT; INH
     Route: 055
     Dates: start: 20091001, end: 20091015

REACTIONS (3)
  - DEVICE BREAKAGE [None]
  - DEVICE FAILURE [None]
  - OXYGEN SATURATION DECREASED [None]
